FAERS Safety Report 9192745 (Version 1)
Quarter: 2013Q1

REPORT INFORMATION
  Report Type: Spontaneous
  Country: US (occurrence: None)
  Receive Date: 20120703
  Receipt Date: 20120703
  Transmission Date: 20140127
  Serious: Yes (Other)
  Sender: FDA-Public Use
  Company Number: PHEH2012US010499

PATIENT
  Age: 70 Year
  Sex: Female

DRUGS (2)
  1. GILENYA (FTY) CAPSULE, 0.5MG [Suspect]
     Indication: MULTIPLE SCLEROSIS
     Route: 048
     Dates: start: 20120316
  2. INDERAL LA (PROPRANOLOL HYDROCHLORIDE) LONG-ACTING CAPSULES, 80MG; AKRIMAX ` [Concomitant]

REACTIONS (2)
  - Heart rate decreased [None]
  - Fatigue [None]
